FAERS Safety Report 16814139 (Version 1)
Quarter: 2019Q3

REPORT INFORMATION
  Report Type: Spontaneous
  Country: US (occurrence: US)
  Receive Date: 20190917
  Receipt Date: 20190917
  Transmission Date: 20191005
  Serious: No
  Sender: FDA-Public Use
  Company Number: US-ALLERGAN-1907709US

PATIENT
  Age: 26 Year
  Sex: Male

DRUGS (1)
  1. CARAFATE [Suspect]
     Active Substance: SUCRALFATE
     Indication: GASTROOESOPHAGEAL REFLUX DISEASE
     Dosage: ACTUAL: 10 ML 2-3 TIMES A DAY
     Route: 048
     Dates: start: 20190219, end: 20190219

REACTIONS (7)
  - Pruritus [Recovered/Resolved]
  - Skin tightness [Recovered/Resolved]
  - Peripheral swelling [Recovered/Resolved]
  - Off label use [Unknown]
  - Inappropriate schedule of product administration [Unknown]
  - Erythema [Recovered/Resolved]
  - Urticaria [Recovered/Resolved]

NARRATIVE: CASE EVENT DATE: 20190219
